FAERS Safety Report 7733219 (Version 4)
Quarter: 2013Q2

REPORT INFORMATION
  Report Type: Spontaneous
  Country: US (occurrence: US)
  Receive Date: 20101223
  Receipt Date: 20130613
  Transmission Date: 20140414
  Serious: Yes (Hospitalization, Other)
  Sender: FDA-Public Use
  Company Number: US-JNJFOC-20100807815

PATIENT
  Sex: Male

DRUGS (2)
  1. LEVAQUIN [Suspect]
     Indication: PNEUMONIA
     Route: 048
     Dates: start: 20080101, end: 20080131
  2. LEVAQUIN [Suspect]
     Indication: BRONCHITIS
     Route: 065

REACTIONS (4)
  - Tendon rupture [Unknown]
  - Depression [Unknown]
  - Fall [Unknown]
  - Myalgia [Unknown]
